FAERS Safety Report 7332166-8 (Version None)
Quarter: 2011Q1

REPORT INFORMATION
  Report Type: 
  Country: None (occurrence: None)
  Receive Date: 20110223
  Receipt Date: 20110211
  Transmission Date: 20110831
  Serious: Yes (Life-Threatening)
  Sender: FDA-Public Use
  Company Number: 831377

PATIENT
  Age: 27 Year
  Sex: Female

DRUGS (3)
  1. THIOPENTAL SODIUM [Suspect]
     Indication: ANAESTHESIA PROCEDURE
     Dosage: 375 MG MILLIGRAM(S), INTRAVENOUS BOLUS
     Route: 040
     Dates: start: 20110130, end: 20110130
  2. (SUXAMETHONIUM) [Suspect]
     Indication: ANAESTHESIA PROCEDURE
     Dosage: 100 MG MILLIGRAM(S) INTRAVENOUS BOLUS
     Route: 040
     Dates: start: 20110130, end: 20110130
  3. FENTANYL [Suspect]
     Indication: ANAESTHESIA PROCEDURE
     Dosage: 150 UG MICROGRAM(S) INTRAVENOUS BOLUS
     Route: 040
     Dates: start: 20110130, end: 20110130

REACTIONS (8)
  - CIRCULATORY COLLAPSE [None]
  - POOR PERIPHERAL CIRCULATION [None]
  - RASH [None]
  - SKIN DISCOLOURATION [None]
  - ANAPHYLACTIC REACTION [None]
  - TACHYCARDIA [None]
  - PALLOR [None]
  - OXYGEN SATURATION DECREASED [None]
